FAERS Safety Report 5390434-3 (Version None)
Quarter: 2007Q3

REPORT INFORMATION
  Report Type: 
  Country: None (occurrence: None)
  Receive Date: 20070718
  Receipt Date: 20061103
  Transmission Date: 20080115
  Serious: No
  Sender: FDA-Public Use
  Company Number: US-KINGPHARMUSA00001-K200601403

PATIENT

DRUGS (5)
  1. LEVOXYL [Suspect]
     Indication: HYPOTHYROIDISM
     Dosage: 100 MCG, QD
     Route: 048
     Dates: end: 20061001
  2. LEVOXYL [Suspect]
     Dosage: 88 MCG, QD
     Route: 048
     Dates: start: 20061001
  3. HEPARIN [Concomitant]
     Indication: ANTICOAGULANT THERAPY
     Dosage: UNK, QOD
     Dates: start: 20010101
  4. RENAGEL [Concomitant]
     Indication: BLOOD PHOSPHORUS
     Dosage: 2 TABLET WITH EACH MEAL
     Route: 048
  5. FORTICAL [Concomitant]
     Indication: OSTEOPOROSIS
     Dosage: 1 SPRAY, QD
     Route: 045

REACTIONS (2)
  - ANGIOEDEMA [None]
  - BLOOD PRESSURE DECREASED [None]
